FAERS Safety Report 11514029 (Version 2)
Quarter: 2015Q4

REPORT INFORMATION
  Report Type: Spontaneous
  Country: US (occurrence: US)
  Receive Date: 20150916
  Receipt Date: 20151228
  Transmission Date: 20160304
  Serious: No
  Sender: FDA-Public Use
  Company Number: US-PFIZER INC-2015309436

PATIENT
  Age: 34 Year
  Sex: Female

DRUGS (3)
  1. GABAPENTIN. [Suspect]
     Active Substance: GABAPENTIN
     Indication: AFFECTIVE DISORDER
     Dosage: 200 MG, 2X/DAY (ON HIGHER DOSES)
     Route: 048
     Dates: start: 20150309, end: 20150408
  2. GABAPENTIN. [Suspect]
     Active Substance: GABAPENTIN
     Dosage: 300 MG, 3X/DAY
     Route: 048
     Dates: start: 20150318, end: 20150324
  3. GABAPENTIN. [Suspect]
     Active Substance: GABAPENTIN
     Indication: FIBROMYALGIA
     Dosage: HIGH DOSE
     Route: 048

REACTIONS (4)
  - Drug ineffective for unapproved indication [Recovered/Resolved]
  - Vertigo [Recovered/Resolved]
  - Confusional state [Unknown]
  - Sedation [Recovered/Resolved]
